FAERS Safety Report 7374009-2 (Version None)
Quarter: 2011Q1

REPORT INFORMATION
  Report Type: 
  Country: None (occurrence: None)
  Receive Date: 20110325
  Receipt Date: 20110323
  Transmission Date: 20110831
  Serious: No
  Sender: FDA-Public Use
  Company Number: US-PFIZER INC-2010069889

PATIENT

DRUGS (1)
  1. GEODON [Suspect]
     Dosage: UNK

REACTIONS (1)
  - PAIN IN EXTREMITY [None]
